FAERS Safety Report 17585600 (Version 1)
Quarter: 2020Q1

REPORT INFORMATION
  Report Type: Spontaneous
  Country: CA (occurrence: CA)
  Receive Date: 20200326
  Receipt Date: 20200326
  Transmission Date: 20200409
  Serious: Yes (Hospitalization, Other)
  Sender: FDA-Public Use
  Company Number: NVSC2020CA082166

PATIENT
  Age: 77 Year
  Sex: Male

DRUGS (9)
  1. METOPROLOL. [Concomitant]
     Active Substance: METOPROLOL
     Indication: PRODUCT USED FOR UNKNOWN INDICATION
     Dosage: UNK
     Route: 065
  2. LISINOPRIL. [Concomitant]
     Active Substance: LISINOPRIL
     Indication: PRODUCT USED FOR UNKNOWN INDICATION
     Route: 048
  3. CORTISON ACETATE [Suspect]
     Active Substance: CORTISONE ACETATE
     Indication: PAIN
     Dosage: 25 MG, QD
     Route: 065
  4. CORTISON ACETATE [Suspect]
     Active Substance: CORTISONE ACETATE
     Indication: ARTHRITIS
     Dosage: UNK
     Route: 065
  5. FOLIC ACID. [Concomitant]
     Active Substance: FOLIC ACID
     Indication: PRODUCT USED FOR UNKNOWN INDICATION
     Dosage: UNK
     Route: 065
  6. CLOPIDOGREL BISULFATE. [Concomitant]
     Active Substance: CLOPIDOGREL BISULFATE
     Indication: PRODUCT USED FOR UNKNOWN INDICATION
     Dosage: UNK
     Route: 065
  7. SANDOSTATIN LAR DEPOT [Suspect]
     Active Substance: OCTREOTIDE ACETATE
     Indication: CARCINOID TUMOUR
     Dosage: 20 MG
     Route: 030
  8. CALCIUM CHLORIDE. [Suspect]
     Active Substance: CALCIUM CHLORIDE
     Indication: PRODUCT USED FOR UNKNOWN INDICATION
     Dosage: 500 MG, BID
     Route: 065
  9. LOVENOX [Concomitant]
     Active Substance: ENOXAPARIN SODIUM
     Indication: PRODUCT USED FOR UNKNOWN INDICATION
     Route: 058

REACTIONS (12)
  - Blood pressure diastolic increased [Recovered/Resolved]
  - Malignant neoplasm progression [Recovered/Resolved]
  - Abdominal pain [Recovered/Resolved]
  - Arthralgia [Recovered/Resolved]
  - Cardiac disorder [Recovered/Resolved]
  - Transfusion-related circulatory overload [Recovered/Resolved]
  - Pain [Recovered/Resolved]
  - Arthritis [Recovered/Resolved]
  - Haemoglobin decreased [Recovered/Resolved]
  - Blood pressure systolic increased [Recovered/Resolved]
  - Cholelithiasis [Recovered/Resolved]
  - Metastases to liver [Recovered/Resolved]
